FAERS Safety Report 8772729 (Version 1)
Quarter: 2012Q4

REPORT INFORMATION
  Report Type: 
  Country: FI (occurrence: KR)
  Receive Date: 20120906
  Receipt Date: 20120906
  Transmission Date: 20130627
  Serious: Yes (Hospitalization)
  Sender: FDA-Public Use
  Company Number: KR-009507513-1206USA01294

PATIENT
  Age: 59 Year
  Sex: Male

DRUGS (2)
  1. TAFLUPROST [Suspect]
     Dosage: UNK
     Route: 047
     Dates: start: 20110727
  2. DORZOLAMIDE HYDROCHLORIDE [Concomitant]
     Route: 047
     Dates: start: 20110810

REACTIONS (1)
  - Drug ineffective [Unknown]
